FAERS Safety Report 14213030 (Version 1)
Quarter: 2017Q4

REPORT INFORMATION
  Report Type: Spontaneous
  Country: FR (occurrence: FR)
  Receive Date: 20171121
  Receipt Date: 20171121
  Transmission Date: 20180321
  Serious: Yes (Hospitalization)
  Sender: FDA-Public Use
  Company Number: FR-MERCK KGAA-2034832

PATIENT
  Age: 62 Year
  Sex: Female

DRUGS (4)
  1. CALCIDOSE [Concomitant]
     Active Substance: CALCIUM CARBONATE
  2. KEPPRA [Concomitant]
     Active Substance: LEVETIRACETAM
  3. NOVOTHYROX [Suspect]
     Active Substance: LEVOTHYROXINE SODIUM
     Indication: THYROIDECTOMY
     Route: 048
  4. UN-ALFA [Concomitant]
     Active Substance: ALFACALCIDOL

REACTIONS (4)
  - Loss of consciousness [Not Recovered/Not Resolved]
  - Feeling hot [Not Recovered/Not Resolved]
  - Malaise [Not Recovered/Not Resolved]
  - Dizziness [Not Recovered/Not Resolved]

NARRATIVE: CASE EVENT DATE: 201705
